FAERS Safety Report 13622858 (Version 3)
Quarter: 2018Q1

REPORT INFORMATION
  Report Type: Spontaneous
  Country: US (occurrence: US)
  Receive Date: 20170607
  Receipt Date: 20180118
  Transmission Date: 20180508
  Serious: No
  Sender: FDA-Public Use
  Company Number: US-LUNDBECK-DKLU2031870

PATIENT
  Sex: Female

DRUGS (5)
  1. NORTHERA [Suspect]
     Active Substance: DROXIDOPA
     Indication: PRODUCT USED FOR UNKNOWN INDICATION
     Dosage: SCHEDULE B AND TITRATING
     Route: 065
     Dates: start: 20170510
  2. NORTHERA [Suspect]
     Active Substance: DROXIDOPA
     Route: 065
  3. NORTHERA [Suspect]
     Active Substance: DROXIDOPA
     Route: 065
  4. NORTHERA [Suspect]
     Active Substance: DROXIDOPA
     Route: 065
  5. NORTHERA [Suspect]
     Active Substance: DROXIDOPA
     Route: 065

REACTIONS (4)
  - Hypotension [Recovered/Resolved]
  - Headache [Recovered/Resolved]
  - Gait disturbance [Recovered/Resolved]
  - Dizziness [Recovered/Resolved]
